FAERS Safety Report 9151913 (Version 1)
Quarter: 2013Q1

REPORT INFORMATION
  Report Type: Report from Study
  Country: DE (occurrence: DE)
  Receive Date: 20130308
  Receipt Date: 20130308
  Transmission Date: 20140127
  Serious: Yes (Hospitalization)
  Sender: FDA-Public Use
  Company Number: DE-UCBSA-000275

PATIENT
  Age: 65 Year
  Sex: Male
  Weight: 90 kg

DRUGS (5)
  1. NEUPRO [Suspect]
     Indication: PARKINSON^S DISEASE
     Dates: start: 20061214, end: 20061217
  2. NEUPRO [Suspect]
     Indication: PARKINSON^S DISEASE
     Dates: start: 20061218
  3. RAMIPRIL [Concomitant]
     Indication: HYPERTENSION
  4. METOHEXAL [Concomitant]
     Indication: HYPERTENSION
  5. HCT [Concomitant]
     Indication: HYPERTENSION

REACTIONS (1)
  - Metastatic carcinoma of the bladder [Recovered/Resolved with Sequelae]
